FAERS Safety Report 17766806 (Version 1)
Quarter: 2020Q2

REPORT INFORMATION
  Report Type: Spontaneous
  Country: DE (occurrence: DE)
  Receive Date: 20200511
  Receipt Date: 20200511
  Transmission Date: 20200714
  Serious: Yes (Other)
  Sender: FDA-Public Use
  Company Number: DE-PFIZER INC-2020182285

PATIENT

DRUGS (3)
  1. VYNDAQEL [Suspect]
     Active Substance: TAFAMIDIS MEGLUMINE
     Dosage: UNK MG
  2. XIPAMID [Interacting]
     Active Substance: XIPAMIDE
     Indication: DIURETIC THERAPY
     Dosage: UNK
  3. TORASEMID [Interacting]
     Active Substance: TORSEMIDE
     Indication: DIURETIC THERAPY
     Dosage: UNK

REACTIONS (5)
  - Drug interaction [Unknown]
  - Hypokalaemia [Unknown]
  - Bradycardia [Unknown]
  - Dizziness [Unknown]
  - Fatigue [Unknown]
